FAERS Safety Report 24955102 (Version 1)
Quarter: 2025Q1

REPORT INFORMATION
  Report Type: Report from Study
  Country: IN (occurrence: IN)
  Receive Date: 20250211
  Receipt Date: 20250211
  Transmission Date: 20250409
  Serious: Yes (Death, Other)
  Sender: ROCHE
  Company Number: US-ROCHE-10000200923

PATIENT

DRUGS (3)
  1. RITUXIMAB [Suspect]
     Active Substance: RITUXIMAB
     Indication: Non-Hodgkin^s lymphoma
     Route: 065
  2. RITUXIMAB [Suspect]
     Active Substance: RITUXIMAB
     Indication: Thrombotic thrombocytopenic purpura
  3. RITUXIMAB [Suspect]
     Active Substance: RITUXIMAB
     Indication: Immune thrombocytopenia

REACTIONS (15)
  - Infusion related reaction [Unknown]
  - Bronchospasm [Unknown]
  - Respiratory symptom [Unknown]
  - Mucosal inflammation [Unknown]
  - Neutropenia [Unknown]
  - Nausea [Unknown]
  - Vomiting [Unknown]
  - Constipation [Unknown]
  - Dyspnoea [Unknown]
  - Chest discomfort [Unknown]
  - Pruritus [Unknown]
  - Chills [Unknown]
  - Throat irritation [Unknown]
  - Anaphylactic reaction [Unknown]
  - Lung disorder [Fatal]
